FAERS Safety Report 7961074-4 (Version None)
Quarter: 2011Q4

REPORT INFORMATION
  Report Type: 
  Country: None (occurrence: None)
  Receive Date: 20111207
  Receipt Date: 20111129
  Transmission Date: 20120403
  Serious: Yes (Death, Hospitalization)
  Sender: FDA-Public Use
  Company Number: GB-ELI_LILLY_AND_COMPANY-GB201109001033

PATIENT
  Sex: Male
  Weight: 73 kg

DRUGS (15)
  1. LANSOPRAZOLE [Concomitant]
     Indication: DYSPEPSIA
     Dosage: 30 MG, QD
     Route: 048
     Dates: start: 20110105, end: 20110115
  2. PRAVASTATIN SODIUM [Concomitant]
     Indication: MYOCARDIAL ISCHAEMIA
     Dosage: 40 MG, QD
     Route: 048
     Dates: start: 20020101, end: 20110115
  3. RAMIPRIL [Concomitant]
     Indication: MYOCARDIAL ISCHAEMIA
     Dosage: 5 MG, QD
     Route: 048
     Dates: start: 20020101, end: 20110115
  4. ASPIRIN [Concomitant]
     Dosage: 300 MG, SINGLE
     Route: 054
     Dates: start: 20110116, end: 20110116
  5. PEMETREXED [Suspect]
     Indication: NON-SMALL CELL LUNG CANCER
     Dosage: 500 MG/M2, UNK
     Route: 042
     Dates: start: 20101230, end: 20101230
  6. CYCLIZINE [Concomitant]
     Indication: NAUSEA
     Dosage: 50 MG, TID
     Route: 048
     Dates: start: 20110105, end: 20110115
  7. ASPIRIN [Concomitant]
     Indication: MYOCARDIAL ISCHAEMIA
     Dosage: 75 MG, QD
     Route: 048
     Dates: start: 20020101, end: 20110115
  8. ATENOLOL [Concomitant]
     Indication: MYOCARDIAL ISCHAEMIA
     Dosage: 25 MG, QD
     Route: 048
     Dates: start: 20020101, end: 20110115
  9. DEXAMETHASONE [Concomitant]
     Indication: PROPHYLAXIS
     Dosage: 4 MG, BID
     Route: 048
     Dates: start: 20101229, end: 20101231
  10. GELCLAIR [Concomitant]
     Indication: ORAL PAIN
     Dosage: 1 DF, PRN
     Route: 048
     Dates: start: 20100110, end: 20110115
  11. TAXOL [Suspect]
     Indication: NON-SMALL CELL LUNG CANCER
     Dosage: 175 MG/M2, UNK
     Route: 042
     Dates: start: 20101230, end: 20101230
  12. VITAMIN B-12 [Concomitant]
     Indication: PROPHYLAXIS
     Dosage: 1000 UG, WEEKLY (1/W)
     Route: 030
     Dates: start: 20101223, end: 20101223
  13. FOLIC ACID [Concomitant]
     Indication: PROPHYLAXIS
     Dosage: 400 UG, QD
     Route: 048
     Dates: start: 20011223, end: 20101223
  14. METOCLOPRAMIDE [Concomitant]
     Indication: ANTIEMETIC SUPPORTIVE CARE
     Dosage: 10 MG, TID
     Route: 048
     Dates: start: 20101230, end: 20110105
  15. NYSTATIN [Concomitant]
     Indication: ORAL CANDIDIASIS
     Dosage: UNK, QD
     Route: 048
     Dates: start: 20100110, end: 20110117

REACTIONS (2)
  - PNEUMONIA [None]
  - HEMIPARESIS [None]
